FAERS Safety Report 15812937 (Version 1)
Quarter: 2019Q1

REPORT INFORMATION
  Report Type: Spontaneous
  Country: IT (occurrence: IT)
  Receive Date: 20190111
  Receipt Date: 20190111
  Transmission Date: 20190417
  Serious: Yes (Hospitalization, Other)
  Sender: FDA-Public Use
  Company Number: IT-GLAXOSMITHKLINE-IT2017204519

PATIENT
  Age: 68 Year
  Sex: Female

DRUGS (3)
  1. NIMESULIDE [Interacting]
     Active Substance: NIMESULIDE
     Indication: ARTHRALGIA
     Dosage: 200 MG, UNK
     Route: 048
  2. ACETYLSALICYLIC ACID [Suspect]
     Active Substance: ASPIRIN
     Indication: PRODUCT USED FOR UNKNOWN INDICATION
     Dosage: 100 MG, UNK
     Route: 065
  3. DICLOFENAC [Suspect]
     Active Substance: DICLOFENAC
     Indication: ARTHRALGIA
     Dosage: 75 MG, UNK
     Route: 030

REACTIONS (3)
  - Gastritis erosive [Unknown]
  - Incorrect product administration duration [Unknown]
  - Drug interaction [Unknown]
